APPROVED DRUG PRODUCT: MEXILETINE HYDROCHLORIDE
Active Ingredient: MEXILETINE HYDROCHLORIDE
Strength: 150MG
Dosage Form/Route: CAPSULE;ORAL
Application: A074711 | Product #001
Applicant: WATSON LABORATORIES INC
Approved: Feb 26, 1997 | RLD: No | RS: No | Type: DISCN